FAERS Safety Report 21945073 (Version 2)
Quarter: 2023Q1

REPORT INFORMATION
  Report Type: Spontaneous
  Country: DE (occurrence: None)
  Receive Date: 20230202
  Receipt Date: 20230227
  Transmission Date: 20230418
  Serious: Yes (Other)
  Sender: FDA-Public Use
  Company Number: DE-Merck Healthcare KGaA-9377536

PATIENT
  Age: 78 Year
  Sex: Female

DRUGS (4)
  1. EUTHYROX [Suspect]
     Active Substance: LEVOTHYROXINE SODIUM
     Indication: Post procedural hypothyroidism
  2. EUTHYROX [Suspect]
     Active Substance: LEVOTHYROXINE SODIUM
  3. EUTHYROX [Suspect]
     Active Substance: LEVOTHYROXINE SODIUM
  4. INSULIN NOS [Concomitant]
     Active Substance: INSULIN NOS
     Indication: Diabetes mellitus

REACTIONS (9)
  - Spinal fracture [Unknown]
  - Vascular device occlusion [Unknown]
  - Cardiac pacemaker insertion [Unknown]
  - Osteoporosis [Unknown]
  - Feeling abnormal [Unknown]
  - Hyperthyroidism [Recovered/Resolved]
  - Cardiac disorder [Unknown]
  - Sacroiliac joint dysfunction [Unknown]
  - Spinal disorder [Unknown]

NARRATIVE: CASE EVENT DATE: 20190101
